FAERS Safety Report 4944765-9 (Version None)
Quarter: 2006Q1

REPORT INFORMATION
  Report Type: 
  Country: None (occurrence: None)
  Receive Date: 20060113
  Receipt Date: 20041210
  Transmission Date: 20060701
  Serious: Yes (Hospitalization, Other)
  Sender: FDA-Public Use
  Company Number: HQWYE542405OCT04

PATIENT
  Age: 57 Year
  Sex: Female
  Weight: 59.93 kg

DRUGS (4)
  1. PREMPRO [Suspect]
     Indication: MENOPAUSE
     Dosage: VARIED BETWEEN 0.3MG/1.5 MG DAILY, ORAL
     Route: 048
     Dates: start: 19960101
  2. ASPIRIN [Concomitant]
  3. DEPAKOTE [Concomitant]
  4. ZONISAMIDE [Concomitant]

REACTIONS (3)
  - CONDITION AGGRAVATED [None]
  - GRAND MAL CONVULSION [None]
  - PETIT MAL EPILEPSY [None]
